FAERS Safety Report 23562228 (Version 1)
Quarter: 2024Q1

REPORT INFORMATION
  Report Type: Spontaneous
  Country: US (occurrence: US)
  Receive Date: 20240226
  Receipt Date: 20240226
  Transmission Date: 20240409
  Serious: No
  Sender: FDA-Public Use
  Company Number: US-Accord-395181

PATIENT
  Age: 55 Year
  Sex: Male

DRUGS (2)
  1. BUSPIRONE [Interacting]
     Active Substance: BUSPIRONE HYDROCHLORIDE
     Indication: Product used for unknown indication
  2. LEVOKETOCONAZOLE [Interacting]
     Active Substance: LEVOKETOCONAZOLE
     Indication: Product used for unknown indication

REACTIONS (1)
  - Drug interaction [Unknown]
